FAERS Safety Report 10150219 (Version 4)
Quarter: 2014Q2

REPORT INFORMATION
  Report Type: Report from Study
  Country: CM (occurrence: CM)
  Receive Date: 20140502
  Receipt Date: 20140605
  Transmission Date: 20141212
  Serious: Yes (Congenital Anomaly, Other)
  Sender: FDA-Public Use
  Company Number: CM-GILEAD-2014-0100852

PATIENT
  Sex: Female
  Weight: 2.95 kg

DRUGS (8)
  1. TENOFOVIR DISOPROXIL FUMARATE [Suspect]
     Indication: HIV INFECTION
     Dosage: UNK
     Route: 064
     Dates: start: 2013, end: 20140322
  2. DARUNAVIR [Suspect]
     Indication: HIV INFECTION
     Dosage: UNK
     Route: 064
     Dates: start: 2013, end: 20140322
  3. RITONAVIR [Suspect]
     Indication: HIV INFECTION
     Dosage: UNK
     Route: 064
     Dates: start: 2013, end: 20140322
  4. METFORMIN [Concomitant]
     Indication: DIABETES MELLITUS
     Dosage: UNK
     Route: 064
     Dates: start: 2013, end: 20140322
  5. CO-TRIMOXAZOLE [Concomitant]
     Indication: OPPORTUNISTIC INFECTION PROPHYLAXIS
     Dosage: UNK
     Route: 064
     Dates: start: 2013, end: 20140322
  6. ACTRAPID [Concomitant]
     Indication: DIABETES MELLITUS
     Route: 064
  7. ACTIMAG [Concomitant]
     Indication: PRENATAL CARE
     Route: 064
  8. TARDYFERON B9                      /00023601/ [Concomitant]
     Indication: PRENATAL CARE
     Route: 064

REACTIONS (1)
  - Ankyloglossia congenital [Unknown]
